FAERS Safety Report 8936396 (Version 1)
Quarter: 2012Q4

REPORT INFORMATION
  Report Type: 
  Country: DE (occurrence: DE)
  Receive Date: 20121130
  Receipt Date: 20121130
  Transmission Date: 20130627
  Serious: Yes (Hospitalization)
  Sender: FDA-Public Use
  Company Number: DE-ELI_LILLY_AND_COMPANY-DE201211006077

PATIENT

DRUGS (2)
  1. CYMBALTA [Suspect]
     Indication: DEPRESSION
     Dosage: 90 mg, UNK
     Route: 048
     Dates: start: 201209, end: 201210
  2. MODOPAR [Concomitant]
     Dosage: 250 mg, qid

REACTIONS (3)
  - Hypotonia [Recovered/Resolved]
  - Faecal incontinence [Recovered/Resolved]
  - Urinary incontinence [Recovered/Resolved]
